FAERS Safety Report 8133628-6 (Version None)
Quarter: 2012Q1

REPORT INFORMATION
  Report Type: 
  Country: None (occurrence: None)
  Receive Date: 20120213
  Receipt Date: 20120130
  Transmission Date: 20120608
  Serious: Yes (Other)
  Sender: FDA-Public Use
  Company Number: FR-CELGENEUS-056-21880-12013176

PATIENT
  Sex: Male
  Weight: 86 kg

DRUGS (19)
  1. PREDNISONE TAB [Concomitant]
     Route: 048
     Dates: start: 20101104
  2. REVLIMID [Suspect]
     Indication: MULTIPLE MYELOMA
     Route: 048
     Dates: start: 20080112, end: 20080402
  3. DEXAMETHASONE [Concomitant]
     Indication: MULTIPLE MYELOMA
     Route: 065
     Dates: start: 20080408, end: 20080704
  4. DEXAMETHASONE [Concomitant]
     Route: 065
     Dates: start: 20080707, end: 20081106
  5. DEXAMETHASONE [Concomitant]
     Route: 065
     Dates: start: 20081209, end: 20090401
  6. DELURSAN [Concomitant]
     Route: 048
     Dates: start: 20100901
  7. CALCI D3 [Concomitant]
     Indication: PROPHYLAXIS
     Route: 048
     Dates: start: 20110530
  8. REVLIMID [Suspect]
     Indication: MULTIPLE MYELOMA
     Route: 048
     Dates: start: 20080408, end: 20080704
  9. DEXAMETHASONE [Concomitant]
     Route: 065
     Dates: start: 20090420, end: 20090618
  10. DEXAMETHASONE [Concomitant]
     Route: 065
  11. VALACYCLOVIR HYDROCHLORIDE [Concomitant]
     Indication: PROPHYLAXIS
     Route: 048
     Dates: start: 20100901
  12. LEUCOVORIN CALCIUM [Concomitant]
     Indication: PROPHYLAXIS
     Route: 048
     Dates: start: 20100901
  13. OMEPRAZOLE [Concomitant]
     Indication: PROPHYLAXIS
     Route: 048
     Dates: start: 20100901
  14. DIPROSONE [Concomitant]
     Route: 061
     Dates: start: 20100901
  15. REVLIMID [Suspect]
     Route: 048
     Dates: start: 20071115, end: 20080101
  16. DEXAMETHASONE [Concomitant]
     Route: 065
     Dates: start: 20091030, end: 20100810
  17. BACTRIM [Concomitant]
     Indication: PROPHYLAXIS
     Route: 048
     Dates: start: 20100901
  18. AMOXICILLIN [Concomitant]
     Indication: PROPHYLAXIS
     Route: 048
     Dates: start: 20100901
  19. VITAMIN B1 B6 [Concomitant]
     Route: 048
     Dates: start: 20110530

REACTIONS (1)
  - KERATOACANTHOMA [None]
